FAERS Safety Report 6193896-7 (Version None)
Quarter: 2009Q2

REPORT INFORMATION
  Report Type: 
  Country: None (occurrence: None)
  Receive Date: 20090518
  Receipt Date: 20090508
  Transmission Date: 20091009
  Serious: Yes (Other)
  Sender: FDA-Public Use
  Company Number: DE-PFIZER INC-2009210006

PATIENT
  Age: 75 Year

DRUGS (1)
  1. SUTENT [Suspect]
     Indication: METASTASES TO LUNG
     Dosage: 50 MG, 1X/DAY
     Route: 048
     Dates: start: 20090401

REACTIONS (5)
  - BLOOD BILIRUBIN UNCONJUGATED INCREASED [None]
  - DIARRHOEA [None]
  - HAEMOLYSIS [None]
  - PERIPHERAL VASCULAR DISORDER [None]
  - THROMBOCYTOPENIA [None]
